FAERS Safety Report 15005808 (Version 5)
Quarter: 2018Q3

REPORT INFORMATION
  Report Type: Spontaneous
  Country: CA (occurrence: CA)
  Receive Date: 20180613
  Receipt Date: 20180928
  Transmission Date: 20181010
  Serious: Yes (Hospitalization, Other)
  Sender: FDA-Public Use
  Company Number: CA-CELLTRION INC.-2017CA017616

PATIENT

DRUGS (20)
  1. SERTRALINE [Concomitant]
     Active Substance: SERTRALINE HYDROCHLORIDE
     Dosage: 50 MG, DAILY
     Route: 048
  2. ELIQUIS [Concomitant]
     Active Substance: APIXABAN
  3. INFLECTRA [Suspect]
     Active Substance: INFLIXIMAB-DYYB
     Dosage: 400 MG/Q 2, 6 WEEKS, THEN EVERY 8 WEEKS
     Route: 042
     Dates: start: 20180321
  4. INFLECTRA [Suspect]
     Active Substance: INFLIXIMAB-DYYB
     Dosage: 400 MG, Q (EVERY 2, 6 WEEKS, THE EVERY 8 WEEKS)
     Route: 042
     Dates: start: 20180418
  5. INFLECTRA [Suspect]
     Active Substance: INFLIXIMAB-DYYB
     Dosage: 400 MG, Q (EVERY 2, 6 WEEKS, THE EVERY 8 WEEKS)
     Route: 042
     Dates: start: 20180626
  6. CORTIFOAM [Concomitant]
     Active Substance: HYDROCORTISONE ACETATE
     Dosage: UNK
     Dates: start: 2009
  7. INFLECTRA [Suspect]
     Active Substance: INFLIXIMAB-DYYB
     Indication: COLITIS ULCERATIVE
     Dosage: 315 MG, CYCLIC (EVERY 0,2,6 WEEKS, THEN EVERY 8 WEEKS
     Route: 042
     Dates: start: 20171209, end: 20171209
  8. INFLECTRA [Suspect]
     Active Substance: INFLIXIMAB-DYYB
     Dosage: 340 MG (5 MG/KG), (EVERY 0,2,6 WEEKS, THEN EVERY 8 WEEKS
     Route: 042
     Dates: start: 20171221, end: 20171221
  9. INFLECTRA [Suspect]
     Active Substance: INFLIXIMAB-DYYB
     Dosage: 400 MG, Q (EVERY 2, 6 WEEKS, THE EVERY 8 WEEKS)
     Route: 042
     Dates: start: 20180530
  10. WARFARIN [Concomitant]
     Active Substance: WARFARIN
     Dosage: 6 MG, DAILY
     Route: 048
     Dates: start: 201702
  11. INFLECTRA [Suspect]
     Active Substance: INFLIXIMAB-DYYB
     Dosage: 400 MG, CYCLIC (EVERY 2, 6 WEEKS, THE EVERY 8 WEEKS)
     Route: 042
     Dates: start: 20180119
  12. IRON [Concomitant]
     Active Substance: IRON
     Dosage: 300 MG, BID
     Route: 048
  13. VITAMIN D                          /00107901/ [Concomitant]
     Active Substance: ERGOCALCIFEROL
     Dosage: 2 DF, DAILY
     Route: 048
  14. CORTIMENT                          /00028601/ [Concomitant]
     Active Substance: HYDROCORTISONE
     Dosage: UNK
     Dates: start: 201709
  15. CIPRO [Concomitant]
     Active Substance: CIPROFLOXACIN HYDROCHLORIDE
     Dosage: UNK
     Dates: start: 201705
  16. MEZAVANT [Concomitant]
     Active Substance: MESALAMINE
     Dosage: 4 DF, DAILY
     Route: 048
     Dates: start: 201711
  17. PREDNISONE. [Concomitant]
     Active Substance: PREDNISONE
     Dosage: 50 MG, DAILY
     Route: 048
     Dates: start: 201709
  18. PANTOLOC                           /01263201/ [Concomitant]
     Active Substance: PANTOPRAZOLE SODIUM
     Dosage: 40 MG, DAILY
     Route: 048
  19. INFLECTRA [Suspect]
     Active Substance: INFLIXIMAB-DYYB
     Dosage: 400 MG, Q (EVERY 2, 6 WEEKS, THE EVERY 8 WEEKS)
     Route: 042
     Dates: start: 20180418
  20. REMICADE [Concomitant]
     Active Substance: INFLIXIMAB
     Dosage: UNK
     Dates: start: 20171209

REACTIONS (10)
  - Weight decreased [Unknown]
  - Phlebitis [Unknown]
  - Skin warm [Unknown]
  - Drug ineffective [Not Recovered/Not Resolved]
  - Cushingoid [Not Recovered/Not Resolved]
  - Urinary tract infection [Recovered/Resolved]
  - Condition aggravated [Not Recovered/Not Resolved]
  - Product use issue [Unknown]
  - Weight increased [Not Recovered/Not Resolved]
  - Cellulitis [Recovering/Resolving]

NARRATIVE: CASE EVENT DATE: 20180530
